FAERS Safety Report 9582204 (Version 1)
Quarter: 2013Q4

REPORT INFORMATION
  Report Type: Spontaneous
  Country: US (occurrence: US)
  Receive Date: 20131002
  Receipt Date: 20131002
  Transmission Date: 20140711
  Serious: No
  Sender: FDA-Public Use
  Company Number: US-AMGEN-USASP2013039163

PATIENT
  Age: 59 Year
  Sex: Male
  Weight: 77.1 kg

DRUGS (7)
  1. ENBREL [Suspect]
     Indication: PRODUCT USED FOR UNKNOWN INDICATION
     Dosage: 50 MG, QWK
     Route: 058
  2. METHOTREXATE [Concomitant]
     Dosage: 2.5 MG, UNK
  3. NAPROSYN                           /00256201/ [Concomitant]
     Dosage: 250 MG, UNK
  4. ARAVA [Concomitant]
     Dosage: 10 MG, UNK
  5. LISINOPRIL [Concomitant]
     Dosage: 5 MG, QD
  6. GLUCOPHAGE [Concomitant]
     Dosage: 500 MG, UNK
  7. GLUCOVANCE [Concomitant]
     Dosage: 2.5-500, UNK, UNK

REACTIONS (1)
  - Influenza [Recovered/Resolved]
